FAERS Safety Report 8335397-3 (Version None)
Quarter: 2012Q2

REPORT INFORMATION
  Report Type: 
  Country: None (occurrence: None)
  Receive Date: 20120503
  Receipt Date: 20120423
  Transmission Date: 20120825
  Serious: Yes (Hospitalization, Disabling)
  Sender: FDA-Public Use
  Company Number: JP-MERCK-0707USA01575

PATIENT
  Age: 81 Year
  Sex: Female

DRUGS (8)
  1. FOSAMAX [Suspect]
     Route: 048
     Dates: start: 20031001, end: 20070101
  2. FOSAMAX [Suspect]
     Indication: OSTEOPOROSIS
     Route: 048
     Dates: start: 20070101, end: 20070701
  3. PREDNISOLONE [Suspect]
     Route: 048
     Dates: start: 20070330
  4. FOSAMAX [Suspect]
     Route: 048
     Dates: start: 20090401
  5. RIMATIL [Suspect]
     Indication: MUSCULOSKELETAL PAIN
     Route: 048
     Dates: start: 20050729
  6. FLURBIPROFEN [Concomitant]
     Route: 065
     Dates: start: 20051111
  7. PREDNISOLONE [Suspect]
     Indication: MUSCULOSKELETAL PAIN
     Route: 048
     Dates: start: 20030101, end: 20070329
  8. SOLETON [Concomitant]
     Indication: MUSCULOSKELETAL PAIN
     Route: 048
     Dates: start: 20050727

REACTIONS (6)
  - HYPOAESTHESIA [None]
  - FISTULA [None]
  - EXPOSED BONE IN JAW [None]
  - OSTEOMYELITIS [None]
  - OSTEONECROSIS OF JAW [None]
  - ABSCESS JAW [None]
